FAERS Safety Report 17950320 (Version 1)
Quarter: 2020Q2

REPORT INFORMATION
  Report Type: Spontaneous
  Country: US (occurrence: US)
  Receive Date: 20200626
  Receipt Date: 20200626
  Transmission Date: 20200714
  Serious: Yes (Hospitalization)
  Sender: FDA-Public Use
  Company Number: None

PATIENT
  Sex: Male
  Weight: 114 kg

DRUGS (4)
  1. FUROSEMIDE. [Suspect]
     Active Substance: FUROSEMIDE
     Indication: HYPERTENSION
     Route: 048
     Dates: start: 20200311, end: 20200318
  2. BUMETANIDE. [Suspect]
     Active Substance: BUMETANIDE
     Indication: OEDEMA
     Route: 048
     Dates: start: 20200315, end: 20200315
  3. FUROSEMIDE. [Suspect]
     Active Substance: FUROSEMIDE
     Indication: OEDEMA
     Route: 048
     Dates: start: 20200311, end: 20200318
  4. BUMETANIDE. [Suspect]
     Active Substance: BUMETANIDE
     Indication: BLOOD PRESSURE MEASUREMENT
     Route: 048
     Dates: start: 20200315, end: 20200315

REACTIONS (13)
  - Lip swelling [None]
  - Bradycardia [None]
  - Rash [None]
  - Lethargy [None]
  - Cardiac arrest [None]
  - Dysphonia [None]
  - Angioedema [None]
  - Metabolic encephalopathy [None]
  - Swollen tongue [None]
  - Irregular breathing [None]
  - Dyspnoea [None]
  - Cardio-respiratory arrest [None]
  - Uraemic encephalopathy [None]
